FAERS Safety Report 8835127 (Version 2)
Quarter: 2012Q4

REPORT INFORMATION
  Report Type: Report from Study
  Country: CA (occurrence: CA)
  Receive Date: 20121011
  Receipt Date: 20121015
  Transmission Date: 20130627
  Serious: Yes (Other)
  Sender: FDA-Public Use
  Company Number: CA-ROCHE-775831

PATIENT
  Sex: Male
  Weight: 49 kg

DRUGS (11)
  1. TOCILIZUMAB [Suspect]
     Indication: RHEUMATOID ARTHRITIS
     Route: 042
  2. OXYCONTIN [Concomitant]
  3. OMEPRAZOLE [Concomitant]
  4. COUMADIN [Concomitant]
  5. ACTONEL [Concomitant]
  6. FOLIC ACID [Concomitant]
  7. METOPROLOL [Concomitant]
  8. ALTACE [Concomitant]
  9. METHOTREXATE [Concomitant]
  10. ALLOPURINOL [Concomitant]
  11. PREDNISONE [Concomitant]

REACTIONS (2)
  - Pneumonia [Not Recovered/Not Resolved]
  - Inguinal hernia [Recovering/Resolving]
